FAERS Safety Report 22023683 (Version 1)
Quarter: 2023Q1

REPORT INFORMATION
  Report Type: Spontaneous
  Country: US (occurrence: US)
  Receive Date: 20230223
  Receipt Date: 20230223
  Transmission Date: 20230417
  Serious: No
  Sender: FDA-Public Use
  Company Number: US-BRISTOL-MYERS SQUIBB COMPANY-2023-016390

PATIENT
  Age: 50 Year
  Sex: Female

DRUGS (3)
  1. SPRYCEL [Suspect]
     Active Substance: DASATINIB
     Indication: Philadelphia positive chronic myeloid leukaemia
     Dosage: EXPIRATION DATE: 28-FEB-2025
     Route: 048
     Dates: start: 20230113
  2. MELOXICAM [Concomitant]
     Active Substance: MELOXICAM
     Indication: Product used for unknown indication
  3. PRAVASTATIN [Concomitant]
     Active Substance: PRAVASTATIN
     Indication: Product used for unknown indication

REACTIONS (6)
  - Fatigue [Unknown]
  - Headache [Unknown]
  - Constipation [Unknown]
  - Skin disorder [Unknown]
  - Poor quality sleep [Unknown]
  - Platelet count decreased [Unknown]
